FAERS Safety Report 19487021 (Version 2)
Quarter: 2021Q4

REPORT INFORMATION
  Report Type: Spontaneous
  Country: IT (occurrence: IT)
  Receive Date: 20210702
  Receipt Date: 20211011
  Transmission Date: 20220303
  Serious: Yes (Other)
  Sender: FDA-Public Use
  Company Number: None

PATIENT
  Age: 34 Year
  Sex: Male

DRUGS (5)
  1. IBUPROFEN [Suspect]
     Active Substance: IBUPROFEN
     Indication: Pain
     Dosage: ; IN TOTAL
     Route: 048
     Dates: start: 20210423, end: 20210523
  2. ACECLOFENAC [Suspect]
     Active Substance: ACECLOFENAC
     Indication: Pain
     Route: 048
     Dates: start: 20210523, end: 20210523
  3. AUGMENTIN [Suspect]
     Active Substance: AMOXICILLIN\CLAVULANATE POTASSIUM
     Indication: Infection
     Route: 048
     Dates: start: 20210523, end: 20210523
  4. NIMESULIDE [Suspect]
     Active Substance: NIMESULIDE
     Indication: Pain
     Route: 048
     Dates: start: 20210523, end: 20210523
  5. KETOPROFEN LYSINE [Suspect]
     Active Substance: KETOPROFEN LYSINE
     Indication: Pain
     Route: 048
     Dates: start: 20210523, end: 20210523

REACTIONS (3)
  - Drug abuse [Recovering/Resolving]
  - Agitation [Recovering/Resolving]
  - Headache [Recovering/Resolving]

NARRATIVE: CASE EVENT DATE: 20210523
